FAERS Safety Report 7501430-1 (Version None)
Quarter: 2011Q2

REPORT INFORMATION
  Report Type: 
  Country: None (occurrence: None)
  Receive Date: 20110524
  Receipt Date: 20101210
  Transmission Date: 20111010
  Serious: Yes (Other)
  Sender: FDA-Public Use
  Company Number: PHHY2010FR87047

PATIENT
  Sex: Female

DRUGS (1)
  1. SANDOSTATIN LAR [Suspect]
     Indication: ACROMEGALY
     Dosage: 30 MG, UNK
     Route: 030
     Dates: start: 19980801

REACTIONS (4)
  - BLOOD GROWTH HORMONE INCREASED [None]
  - DRUG EXPOSURE DURING PREGNANCY [None]
  - INSULIN-LIKE GROWTH FACTOR INCREASED [None]
  - NORMAL NEWBORN [None]
